FAERS Safety Report 7611886-1 (Version None)
Quarter: 2011Q3

REPORT INFORMATION
  Report Type: 
  Country: None (occurrence: None)
  Receive Date: 20110715
  Receipt Date: 20110705
  Transmission Date: 20111222
  Serious: Yes (Other)
  Sender: FDA-Public Use
  Company Number: FR-VERTEX PHARMACEUTICALS INC.-AE-2011-000464

PATIENT
  Sex: Male
  Weight: 107 kg

DRUGS (7)
  1. VX-950 [Suspect]
     Indication: HEPATITIS C
     Route: 048
     Dates: start: 20110505
  2. PEGASYS [Concomitant]
     Indication: HEPATITIS C
     Route: 058
     Dates: start: 20110505
  3. FENOFIBRATE [Concomitant]
     Indication: HYPERCHOLESTEROLAEMIA
     Dates: start: 20091012
  4. ZOLOFT [Concomitant]
     Indication: DEPRESSION
     Dates: start: 20090101
  5. EPO [Concomitant]
  6. TOCO [Concomitant]
     Indication: INSULIN RESISTANCE
     Dates: start: 20110531
  7. COPEGUS [Concomitant]
     Indication: HEPATITIS C
     Route: 048
     Dates: start: 20110505

REACTIONS (1)
  - ASTHENIA [None]
